FAERS Safety Report 10930308 (Version 1)
Quarter: 2015Q1

REPORT INFORMATION
  Report Type: Spontaneous
  Country: US (occurrence: US)
  Receive Date: 20150319
  Receipt Date: 20150319
  Transmission Date: 20150721
  Serious: Yes (Other)
  Sender: FDA-Public Use
  Company Number: US-PFIZER INC-2015095480

PATIENT
  Age: 58 Year
  Sex: Female
  Weight: 52 kg

DRUGS (6)
  1. MIRTAZAPINE. [Concomitant]
     Active Substance: MIRTAZAPINE
  2. ESTRING [Suspect]
     Active Substance: ESTRADIOL
     Indication: UTERINE HAEMORRHAGE
  3. ESTROGEN [Concomitant]
     Active Substance: ESTRONE\SUS SCROFA OVARY
  4. BUPROPION [Concomitant]
     Active Substance: BUPROPION
  5. OMEPRAZOLE. [Concomitant]
     Active Substance: OMEPRAZOLE
  6. ESTRING [Suspect]
     Active Substance: ESTRADIOL
     Indication: PREVENTION OF ENDOMETRIAL HYPERPLASIA

REACTIONS (4)
  - Postmenopausal haemorrhage [Not Recovered/Not Resolved]
  - Night sweats [Unknown]
  - Wrong technique in drug usage process [Unknown]
  - Hyperhidrosis [Unknown]
